FAERS Safety Report 7086821-8 (Version None)
Quarter: 2010Q4

REPORT INFORMATION
  Report Type: 
  Country: None (occurrence: None)
  Receive Date: 20101105
  Receipt Date: 20101019
  Transmission Date: 20110411
  Serious: Yes (Hospitalization)
  Sender: FDA-Public Use
  Company Number: DE-AMGEN-DEUCT2010001030

PATIENT

DRUGS (5)
  1. ENBREL [Suspect]
     Indication: RHEUMATOID ARTHRITIS
     Route: 058
     Dates: start: 20100422, end: 20100101
  2. SULFASALAZINE [Concomitant]
     Dosage: 2000 MG, FREQUENCY UNKNOWN
  3. FOLIC ACID [Concomitant]
     Dosage: 5 MG, FREQUENCY UNKNOWN
  4. PREDNISOLONE [Concomitant]
     Dosage: 10 MG, FREQUENCY UNKNOWN
  5. METHOTREXATE [Concomitant]
     Dosage: 20 MG, FREQUENCY UNKNOWN

REACTIONS (1)
  - FOOT DEFORMITY [None]
